FAERS Safety Report 5721790-1 (Version None)
Quarter: 2008Q2

REPORT INFORMATION
  Report Type: 
  Country: None (occurrence: None)
  Receive Date: 20080429
  Receipt Date: 20070427
  Transmission Date: 20081010
  Serious: No
  Sender: FDA-Public Use
  Company Number: US-ASTRAZENECA-2007UW08339

PATIENT
  Sex: Male

DRUGS (2)
  1. NEXIUM [Suspect]
     Indication: GASTROOESOPHAGEAL REFLUX DISEASE
     Route: 048
     Dates: start: 20070413
  2. MANY UNSPECIFIED [Concomitant]

REACTIONS (4)
  - HYPERSENSITIVITY [None]
  - NASAL DISCOMFORT [None]
  - RHINORRHOEA [None]
  - SNEEZING [None]
